FAERS Safety Report 6844054-1 (Version None)
Quarter: 2010Q2

REPORT INFORMATION
  Report Type: 
  Country: None (occurrence: None)
  Receive Date: 20100629
  Receipt Date: 20100301
  Transmission Date: 20101027
  Serious: Yes (Other)
  Sender: FDA-Public Use
  Company Number: US-WYE-H13003810

PATIENT
  Age: 23 Year
  Sex: Female
  Weight: 57.66 kg

DRUGS (6)
  1. PRISTIQ [Suspect]
     Indication: DEPRESSION
     Dosage: 50 MG 1X PER 2 DAY, ORAL; 50 MG 1X PER 1 DAY, ORAL
     Route: 048
     Dates: start: 20090301, end: 20091229
  2. PRISTIQ [Suspect]
     Indication: DEPRESSION
     Dosage: 50 MG 1X PER 2 DAY, ORAL; 50 MG 1X PER 1 DAY, ORAL
     Route: 048
     Dates: start: 20091230, end: 20100109
  3. FLUDROCORTISONE ACETATE [Concomitant]
  4. MIDORINE (MIDORINE) [Concomitant]
  5. MULTI-VITAMINS [Concomitant]
  6. KAPIDEX (DEXLANSOPRAZOLE) [Concomitant]

REACTIONS (6)
  - DIZZINESS [None]
  - DRUG WITHDRAWAL SYNDROME [None]
  - FEELING OF BODY TEMPERATURE CHANGE [None]
  - HYPOAESTHESIA ORAL [None]
  - PARAESTHESIA [None]
  - TREMOR [None]
